FAERS Safety Report 4398589-4 (Version None)
Quarter: 2004Q2

REPORT INFORMATION
  Report Type: 
  Country: None (occurrence: None)
  Receive Date: 20040621
  Receipt Date: 20031216
  Transmission Date: 20050107
  Serious: Yes (Other)
  Sender: FDA-Public Use
  Company Number: USA-2003-0006634

PATIENT
  Age: 43 Year
  Sex: Male

DRUGS (9)
  1. OXYCONTIN [Suspect]
     Indication: PAIN
     Dosage: 480 MG, TID, ORAL
     Route: 048
  2. HYDROCODONE BITARTRATE [Suspect]
     Indication: PAIN
  3. OXYCODONE HCL [Suspect]
     Dosage: 5 MG, Q4H PRN
  4. DURAGESIC [Suspect]
     Dosage: TRANSDERMAL
     Route: 062
  5. XANAX [Concomitant]
  6. NEURONTIN [Concomitant]
  7. PHENOBARBITAL TAB [Concomitant]
  8. ELAVIL [Concomitant]
  9. PAXIL [Concomitant]

REACTIONS (2)
  - DRUG ABUSER [None]
  - DRUG TOLERANCE [None]
